FAERS Safety Report 6237147-3 (Version None)
Quarter: 2009Q2

REPORT INFORMATION
  Report Type: 
  Country: None (occurrence: None)
  Receive Date: 20090619
  Receipt Date: 20090428
  Transmission Date: 20091009
  Serious: No
  Sender: FDA-Public Use
  Company Number: US-ASTRAZENECA-2009UW10626

PATIENT
  Age: 65 Year
  Sex: Female

DRUGS (6)
  1. SYMBICORT [Suspect]
     Dosage: 180/4.5 INHALATION TWO TIMES A DAY
     Route: 055
  2. SPIRIVA [Concomitant]
  3. XANAX [Concomitant]
  4. ASPIRIN [Concomitant]
  5. NEXIUM [Concomitant]
  6. TEMAZEPAM [Concomitant]

REACTIONS (2)
  - ALOPECIA [None]
  - MYALGIA [None]
